FAERS Safety Report 9650756 (Version 1)
Quarter: 2013Q4

REPORT INFORMATION
  Report Type: Spontaneous
  Country: US (occurrence: US)
  Receive Date: 20131029
  Receipt Date: 20131029
  Transmission Date: 20140711
  Serious: Yes (Death)
  Sender: FDA-Public Use
  Company Number: US-ROCHE-1292879

PATIENT
  Age: 46 Year
  Sex: Male

DRUGS (7)
  1. PEGASYS [Suspect]
     Indication: HEPATITIS C
     Route: 065
  2. RIBAVIRIN [Suspect]
     Indication: HEPATITIS C
     Route: 065
  3. RIBAVIRIN [Suspect]
     Dosage: REDUCED DOSE
     Route: 065
  4. INCIVEK [Concomitant]
     Indication: HEPATITIS C
  5. PROCRIT [Concomitant]
  6. SPIRONOLACTONE [Concomitant]
     Indication: POLYURIA
  7. LASIX [Concomitant]
     Indication: POLYURIA

REACTIONS (8)
  - Peritonitis bacterial [Fatal]
  - Septic shock [Fatal]
  - Abdominal distension [Unknown]
  - Abdominal pain [Unknown]
  - Vomiting [Unknown]
  - Local swelling [Unknown]
  - Hepatic fibrosis [Unknown]
  - Ascites [Unknown]
